FAERS Safety Report 20472719 (Version 1)
Quarter: 2022Q1

REPORT INFORMATION
  Report Type: Spontaneous
  Country: DE (occurrence: DE)
  Receive Date: 20220215
  Receipt Date: 20220215
  Transmission Date: 20220423
  Serious: Yes (Death, Hospitalization)
  Sender: FDA-Public Use
  Company Number: DE-LUPIN PHARMACEUTICALS INC.-2022-02011

PATIENT
  Age: 45 Year
  Sex: Female

DRUGS (4)
  1. BUDESONIDE [Suspect]
     Active Substance: BUDESONIDE
     Indication: Autoimmune enteropathy
     Dosage: UNK
     Route: 065
  2. PEMBROLIZUMAB [Concomitant]
     Active Substance: PEMBROLIZUMAB
     Indication: Progressive multifocal leukoencephalopathy
     Dosage: 2 MILLIGRAM/KILOGRAM
     Route: 065
  3. PEMBROLIZUMAB [Concomitant]
     Active Substance: PEMBROLIZUMAB
     Dosage: 0.5 MILLIGRAM/KILOGRAM, FOURTH DOSE IN A DECREASED MANNER
     Route: 065
  4. HUMAN IMMUNOGLOBULIN G [Concomitant]
     Active Substance: HUMAN IMMUNOGLOBULIN G
     Indication: Immunodeficiency common variable
     Dosage: UNK
     Route: 065

REACTIONS (2)
  - Drug ineffective for unapproved indication [Fatal]
  - Off label use [Unknown]
